FAERS Safety Report 19487029 (Version 2)
Quarter: 2021Q3

REPORT INFORMATION
  Report Type: Spontaneous
  Country: CA (occurrence: CA)
  Receive Date: 20210702
  Receipt Date: 20210720
  Transmission Date: 20211014
  Serious: Yes (Hospitalization, Other)
  Sender: FDA-Public Use
  Company Number: CA-SEPTODONT-2021006371

PATIENT
  Age: 68 Year
  Sex: Male

DRUGS (9)
  1. ACETAMINOPHEN. [Suspect]
     Active Substance: ACETAMINOPHEN
     Dates: start: 20210202
  2. MIDAZOLAM. [Suspect]
     Active Substance: MIDAZOLAM
     Dates: start: 20210202
  3. FENTANYL. [Suspect]
     Active Substance: FENTANYL
     Dates: start: 20210202
  4. KETAMINE [Suspect]
     Active Substance: KETAMINE
     Dates: start: 20210202
  5. PROPOFOL. [Suspect]
     Active Substance: PROPOFOL
     Dates: start: 20210202
  6. BUPIVACAINE 0.5% AND EPINEPHRINE 1:200,000 [Suspect]
     Active Substance: BUPIVACAINE\EPINEPHRINE
     Dates: start: 20210202
  7. SALBUTAMOL [Suspect]
     Active Substance: ALBUTEROL
     Dates: start: 20210202
  8. LIDOCAINE. [Suspect]
     Active Substance: LIDOCAINE
     Route: 004
     Dates: start: 20210202
  9. CEFAZOLIN [Suspect]
     Active Substance: CEFAZOLIN
     Dates: start: 20210202

REACTIONS (1)
  - Anaphylactic reaction [Recovered/Resolved]
